FAERS Safety Report 12527877 (Version 1)
Quarter: 2016Q3

REPORT INFORMATION
  Report Type: Spontaneous
  Country: GB (occurrence: GB)
  Receive Date: 20160705
  Receipt Date: 20160705
  Transmission Date: 20161109
  Serious: Yes (Other)
  Sender: FDA-Public Use
  Company Number: GB-ASTRAZENECA-2016SE70357

PATIENT
  Age: 39 Year
  Sex: Female

DRUGS (4)
  1. EXEMESTANE. [Suspect]
     Active Substance: EXEMESTANE
     Indication: BREAST CANCER
     Route: 065
  2. ZOLADEX [Suspect]
     Active Substance: GOSERELIN ACETATE
     Indication: BREAST CANCER
     Route: 058
  3. AFINITOR [Suspect]
     Active Substance: EVEROLIMUS
     Indication: BREAST CANCER
     Route: 065
  4. ZOMETA [Suspect]
     Active Substance: ZOLEDRONIC ACID
     Indication: BREAST CANCER
     Route: 065

REACTIONS (3)
  - Mucosal inflammation [Unknown]
  - Palmar-plantar erythrodysaesthesia syndrome [Unknown]
  - Malignant neoplasm progression [Unknown]
